FAERS Safety Report 13561451 (Version 1)
Quarter: 2017Q2

REPORT INFORMATION
  Report Type: Spontaneous
  Country: US (occurrence: US)
  Receive Date: 20170518
  Receipt Date: 20170518
  Transmission Date: 20170830
  Serious: Yes (Disabling)
  Sender: FDA-Public Use
  Company Number: US-BRECKENRIDGE PHARMACEUTICAL, INC.-2020959

PATIENT
  Sex: Male

DRUGS (1)
  1. OXCARBAZEPINE TABLET, FILM COATED [Suspect]
     Active Substance: OXCARBAZEPINE
     Indication: SEIZURE
     Route: 048

REACTIONS (1)
  - Depression [Not Recovered/Not Resolved]
